FAERS Safety Report 8228823-1 (Version None)
Quarter: 2012Q1

REPORT INFORMATION
  Report Type: 
  Country: None (occurrence: None)
  Receive Date: 20120322
  Receipt Date: 20120213
  Transmission Date: 20120608
  Serious: Yes (Other)
  Sender: FDA-Public Use
  Company Number: KR-GLAXOSMITHKLINE-B0781470A

PATIENT
  Age: 16 Year
  Sex: Male

DRUGS (1)
  1. DUAC [Suspect]
     Indication: ACNE
     Route: 065
     Dates: start: 20120210

REACTIONS (3)
  - PRURITUS [None]
  - APPLICATION SITE NECROSIS [None]
  - RASH [None]
